FAERS Safety Report 13619991 (Version 1)
Quarter: 2017Q2

REPORT INFORMATION
  Report Type: Spontaneous
  Country: US (occurrence: US)
  Receive Date: 20170607
  Receipt Date: 20170607
  Transmission Date: 20170830
  Serious: No
  Sender: FDA-Public Use
  Company Number: US-B.I. PHARMACEUTICALS,INC./RIDGEFIELD-2017-BI-030663

PATIENT
  Sex: Male

DRUGS (1)
  1. COMBIVENT [Suspect]
     Active Substance: ALBUTEROL SULFATE\IPRATROPIUM BROMIDE
     Indication: ASTHMA
     Dosage: AS NEEDED, USED 2 CANISTERS IN 1 MONTH;  FORM STRENGTH: 20 MCG / 100 MCG; FORMULATION: INHALATION SP
     Route: 055
     Dates: start: 2013

REACTIONS (3)
  - Medication error [Not Recovered/Not Resolved]
  - Off label use [Unknown]
  - Post-traumatic stress disorder [Unknown]

NARRATIVE: CASE EVENT DATE: 2013
